FAERS Safety Report 5943343-2 (Version None)
Quarter: 2008Q4

REPORT INFORMATION
  Report Type: 
  Country: None (occurrence: None)
  Receive Date: 20081105
  Receipt Date: 20081105
  Transmission Date: 20090506
  Serious: Yes (Hospitalization)
  Sender: FDA-Public Use
  Company Number: None

PATIENT
  Age: 77 Year
  Sex: Male
  Weight: 66.6788 kg

DRUGS (10)
  1. LENALIDOMIDE [Suspect]
     Indication: HEPATIC NEOPLASM MALIGNANT
     Dosage: 25 MG DAILY X 21 DAYS PO
     Route: 048
     Dates: start: 20081011, end: 20081019
  2. FURESOMIDE [Concomitant]
  3. ALDACTONE [Concomitant]
  4. PREDNISONE TAB [Concomitant]
  5. COMPAZINE [Concomitant]
  6. NORVASC [Concomitant]
  7. LISINOPRIL [Concomitant]
  8. ETANERCEPT [Concomitant]
  9. CELEBREX [Concomitant]
  10. PROTONIX [Concomitant]

REACTIONS (13)
  - ABDOMINAL DISTENSION [None]
  - ALPHA 1 FOETOPROTEIN INCREASED [None]
  - ASTHENIA [None]
  - BLISTER [None]
  - CELLULITIS [None]
  - CONFUSIONAL STATE [None]
  - COUGH [None]
  - DISEASE PROGRESSION [None]
  - ERYTHEMA [None]
  - GAIT DISTURBANCE [None]
  - HYPOTENSION [None]
  - LETHARGY [None]
  - OEDEMA PERIPHERAL [None]
